FAERS Safety Report 7751829-3 (Version None)
Quarter: 2011Q3

REPORT INFORMATION
  Report Type: 
  Country: None (occurrence: None)
  Receive Date: 20110914
  Receipt Date: 20110914
  Transmission Date: 20111222
  Serious: Yes (Hospitalization)
  Sender: FDA-Public Use
  Company Number: None

PATIENT
  Sex: Female
  Weight: 62.73 kg

DRUGS (4)
  1. ATIVAN [Concomitant]
  2. TAXOL [Suspect]
     Dosage: 289 MG
  3. CARBOPLATIN [Suspect]
     Dosage: 354 MG
  4. XANAX [Concomitant]

REACTIONS (20)
  - MENTAL STATUS CHANGES [None]
  - BLOOD CALCIUM DECREASED [None]
  - ELECTROCARDIOGRAM ABNORMAL [None]
  - PLATELET COUNT DECREASED [None]
  - BLOOD MAGNESIUM DECREASED [None]
  - BLOOD ALBUMIN DECREASED [None]
  - ELECTROLYTE IMBALANCE [None]
  - URINARY TRACT INFECTION [None]
  - WHITE BLOOD CELL COUNT DECREASED [None]
  - BLOOD POTASSIUM DECREASED [None]
  - BLOOD PHOSPHORUS DECREASED [None]
  - BLOOD SODIUM DECREASED [None]
  - BLOOD BILIRUBIN INCREASED [None]
  - BLOOD PRESSURE SYSTOLIC INCREASED [None]
  - ASPARTATE AMINOTRANSFERASE INCREASED [None]
  - NEUTROPENIA [None]
  - ANAEMIA [None]
  - OXYGEN SATURATION DECREASED [None]
  - ATRIAL FIBRILLATION [None]
  - BLOOD CHLORIDE DECREASED [None]
